FAERS Safety Report 25902248 (Version 1)
Quarter: 2025Q4

REPORT INFORMATION
  Report Type: Spontaneous
  Country: US (occurrence: US)
  Receive Date: 20251009
  Receipt Date: 20251009
  Transmission Date: 20260118
  Serious: No
  Sender: CSL BEHRING
  Company Number: US-BEH-2025220619

PATIENT
  Sex: Female

DRUGS (2)
  1. PRIVIGEN [Suspect]
     Active Substance: HUMAN IMMUNOGLOBULIN G
     Indication: Immunisation
     Dosage: 140 G, QMT (35 GM ((350ML) DAY 1, 2 , 3, 4
     Route: 042
     Dates: start: 202509
  2. PRIVIGEN [Suspect]
     Active Substance: HUMAN IMMUNOGLOBULIN G
     Dosage: 40 G, QMT (40 GM ((400ML) DAY 5
     Route: 042
     Dates: start: 202509

REACTIONS (5)
  - Vomiting [Unknown]
  - Dizziness [Unknown]
  - Dizziness [Unknown]
  - Headache [Unknown]
  - Influenza like illness [Unknown]
